FAERS Safety Report 10509545 (Version 1)
Quarter: 2014Q4

REPORT INFORMATION
  Report Type: Spontaneous
  Country: GB (occurrence: GB)
  Receive Date: 20141010
  Receipt Date: 20141010
  Transmission Date: 20150528
  Serious: Yes (Other)
  Sender: FDA-Public Use
  Company Number: GB-AMGEN-GBRSP2014077200

PATIENT
  Age: 72 Year
  Sex: Male
  Weight: 65.5 kg

DRUGS (1)
  1. NPLATE [Suspect]
     Active Substance: ROMIPLOSTIM
     Indication: IMMUNE THROMBOCYTOPENIC PURPURA
     Dosage: 750 MUG, QWK
     Route: 058
     Dates: start: 201206

REACTIONS (4)
  - Oedema peripheral [Not Recovered/Not Resolved]
  - Peripheral ischaemia [Not Recovered/Not Resolved]
  - Gangrene [Not Recovered/Not Resolved]
  - Onychogryphosis [Not Recovered/Not Resolved]

NARRATIVE: CASE EVENT DATE: 201406
